FAERS Safety Report 8105487-9 (Version None)
Quarter: 2012Q1

REPORT INFORMATION
  Report Type: 
  Country: None (occurrence: None)
  Receive Date: 20120201
  Receipt Date: 20120126
  Transmission Date: 20120608
  Serious: Yes (Other)
  Sender: FDA-Public Use
  Company Number: GB-PFIZER INC-2012010208

PATIENT

DRUGS (3)
  1. EFFEXOR XR [Suspect]
     Dosage: 75 MG, UNK
  2. EFFEXOR XR [Suspect]
     Dosage: 112.5 MG UNIT DOSE (MIX OF XR AND PLAIN TABLETS)
  3. VENLAFAXINE HCL [Suspect]
     Dosage: 112.5 MG UNIT DOSE (MIX OF XR AND PLAIN TABLETS)

REACTIONS (1)
  - PNEUMOTHORAX [None]
